FAERS Safety Report 10159205 (Version 1)
Quarter: 2014Q2

REPORT INFORMATION
  Report Type: Spontaneous
  Country: JP (occurrence: None)
  Receive Date: 20140506
  Receipt Date: 20140506
  Transmission Date: 20141212
  Serious: Yes (Hospitalization)
  Sender: FDA-Public Use
  Company Number: 2014P1003021

PATIENT
  Age: 20 Year
  Sex: Female

DRUGS (2)
  1. AMPHETAMINE [Suspect]
  2. METHAMPHETAMINE [Suspect]

REACTIONS (24)
  - Chest pain [None]
  - Nausea [None]
  - Respiratory disorder [None]
  - Hyperhidrosis [None]
  - Loss of consciousness [None]
  - Mydriasis [None]
  - Toxicity to various agents [None]
  - Restlessness [None]
  - Tachycardia [None]
  - Vomiting [None]
  - Abdominal pain [None]
  - Hypoaesthesia [None]
  - Insomnia [None]
  - Logorrhoea [None]
  - Incoherent [None]
  - Psychomotor hyperactivity [None]
  - Restlessness [None]
  - Hypercalcaemia [None]
  - Hyperproteinaemia [None]
  - Dehydration [None]
  - Agitation [None]
  - Blood pressure increased [None]
  - Pallor [None]
  - Encephalitis viral [None]
